FAERS Safety Report 9145981 (Version 1)
Quarter: 2013Q1

REPORT INFORMATION
  Report Type: Spontaneous
  Country: US (occurrence: None)
  Receive Date: 20130227
  Receipt Date: 20130227
  Transmission Date: 20140127
  Serious: Yes (Other)
  Sender: FDA-Public Use
  Company Number: None

PATIENT
  Sex: Female

DRUGS (6)
  1. CELEXA [Suspect]
  2. PAXIL [Suspect]
  3. LEXAPRO [Suspect]
  4. CITALOPRAM [Suspect]
  5. SERTRALINE [Suspect]
  6. ZOLOFT [Concomitant]

REACTIONS (5)
  - Nausea [None]
  - Vomiting [None]
  - Panic attack [None]
  - Drug ineffective [None]
  - Hallucination [None]
